FAERS Safety Report 11363201 (Version 1)
Quarter: 2015Q3

REPORT INFORMATION
  Report Type: Spontaneous
  Country: DE (occurrence: None)
  Receive Date: 20150807
  Receipt Date: 20150807
  Transmission Date: 20151125
  Serious: Yes (Life-Threatening)
  Sender: FDA-Public Use
  Company Number: DE-AGG-07-2015-0596

PATIENT
  Age: 50 Year
  Sex: Male
  Weight: 105 kg

DRUGS (10)
  1. ACE-INHIBITOR [Concomitant]
     Active Substance: UNSPECIFIED INGREDIENT
  2. CALCIUM ANTAGONIST [Concomitant]
     Active Substance: UNSPECIFIED INGREDIENT
  3. TIROFIBAN HCL [Suspect]
     Active Substance: TIROFIBAN HYDROCHLORIDE
     Indication: ANTIPLATELET THERAPY
     Dosage: 1 X 10.5 ML EVERY 1 DAY(S) INTRAVENOU
     Route: 042
     Dates: start: 20070227, end: 20070227
  4. TIROFIBAN HCL [Suspect]
     Active Substance: TIROFIBAN HYDROCHLORIDE
     Indication: ANTIPLATELET THERAPY
     Dosage: 1 X 19 ML EVERY 1 HOUR(S) INTRAVENOUS
     Route: 042
     Dates: start: 20070227, end: 20070228
  5. BETA BLOCKER [Concomitant]
     Active Substance: UNSPECIFIED INGREDIENT
  6. DIURETIC [Suspect]
     Active Substance: UNSPECIFIED INGREDIENT
  7. STATIN [Concomitant]
     Active Substance: UNSPECIFIED INGREDIENT
  8. ACETYLSALICYLIC ACID [Concomitant]
     Active Substance: ASPIRIN
  9. ORAL ANTI DIABETIC [Concomitant]
  10. PANTOZOL [Concomitant]
     Active Substance: PANTOPRAZOLE SODIUM

REACTIONS (1)
  - Coronary artery reocclusion [None]

NARRATIVE: CASE EVENT DATE: 20070228
